FAERS Safety Report 10242934 (Version 2)
Quarter: 2014Q3

REPORT INFORMATION
  Report Type: Spontaneous
  Country: US (occurrence: US)
  Receive Date: 20140618
  Receipt Date: 20140717
  Transmission Date: 20150326
  Serious: No
  Sender: FDA-Public Use
  Company Number: US-BIOGENIDEC-2014BI056103

PATIENT
  Age: 59 Year
  Sex: Female

DRUGS (26)
  1. MULTI-DAY [Concomitant]
  2. BUTORPHANOL TARTRATE. [Concomitant]
     Active Substance: BUTORPHANOL TARTRATE
  3. RITALIN [Concomitant]
     Active Substance: METHYLPHENIDATE HYDROCHLORIDE
  4. NIACIN. [Concomitant]
     Active Substance: NIACIN
  5. DARVOCET A500 [Concomitant]
     Active Substance: ACETAMINOPHEN\PROPOXYPHENE NAPSYLATE
  6. CYCLOBENZAPRINE HC [Concomitant]
  7. XANAX [Concomitant]
     Active Substance: ALPRAZOLAM
  8. TRAVATAN Z [Concomitant]
     Active Substance: TRAVOPROST
  9. METHYLPHENIDATE HCL ER (CD) [Concomitant]
  10. HYDROXYZINE HCL [Concomitant]
     Active Substance: HYDROXYZINE HYDROCHLORIDE
  11. FERROUS SULFATE [Concomitant]
     Active Substance: FERROUS SULFATE\FERROUS SULFATE, DRIED
  12. ENZYME DIGEST [Concomitant]
  13. CHROMIUM [Concomitant]
     Active Substance: CHROMIC CHLORIDE\CHROMIUM
  14. AVONEX [Suspect]
     Active Substance: INTERFERON BETA-1A
     Indication: MULTIPLE SCLEROSIS
     Route: 030
  15. ZANAFLEX [Concomitant]
     Active Substance: TIZANIDINE HYDROCHLORIDE
  16. VITAMIN E [Concomitant]
     Active Substance: .ALPHA.-TOCOPHEROL
  17. VITAMIN C [Concomitant]
     Active Substance: ASCORBIC ACID
  18. TIZANIDINE HCL [Concomitant]
     Active Substance: TIZANIDINE HYDROCHLORIDE
  19. LIORESAL [Concomitant]
     Active Substance: BACLOFEN
  20. LASIX [Concomitant]
     Active Substance: FUROSEMIDE
  21. LACTAID [Concomitant]
     Active Substance: LACTASE
  22. BEANO [Concomitant]
     Active Substance: ASPERGILLUS NIGER .ALPHA.-GALACTOSIDASE
  23. VITAMIN D [Concomitant]
     Active Substance: CHOLECALCIFEROL
  24. VISTARIL [Concomitant]
     Active Substance: HYDROXYZINE PAMOATE
  25. TRAMADOL HCL [Concomitant]
     Active Substance: TRAMADOL HYDROCHLORIDE
  26. FUROSEMIDE. [Concomitant]
     Active Substance: FUROSEMIDE

REACTIONS (1)
  - Lower extremity mass [Unknown]

NARRATIVE: CASE EVENT DATE: 201405
